FAERS Safety Report 6237106-0 (Version None)
Quarter: 2009Q2

REPORT INFORMATION
  Report Type: 
  Country: None (occurrence: None)
  Receive Date: 20090619
  Receipt Date: 20090410
  Transmission Date: 20091009
  Serious: No
  Sender: FDA-Public Use
  Company Number: US-ASTRAZENECA-2009UW09118

PATIENT
  Sex: Female
  Weight: 64.9 kg

DRUGS (9)
  1. SYMBICORT [Suspect]
     Indication: ASTHMA
     Dosage: 2 PUFFS TWICE A DAY THIS MORNING
     Route: 055
  2. SYMBICORT [Suspect]
     Dosage: 2 PUFFS TWICE A DAY YESTERDAY
     Route: 055
  3. ALBUTEROL [Concomitant]
  4. CORTAZIDE [Concomitant]
  5. ATACAND [Concomitant]
  6. CELEBREX [Concomitant]
  7. LIPITOR [Concomitant]
  8. ACIPHEX [Concomitant]
  9. LASIX [Concomitant]

REACTIONS (2)
  - CHEST PAIN [None]
  - DYSPNOEA [None]
